FAERS Safety Report 4414972-2 (Version None)
Quarter: 2004Q3

REPORT INFORMATION
  Report Type: 
  Country: None (occurrence: None)
  Receive Date: 20040803
  Receipt Date: 20040803
  Transmission Date: 20050211
  Serious: Yes (Hospitalization)
  Sender: FDA-Public Use
  Company Number: None

PATIENT
  Age: 69 Year
  Sex: Male
  Weight: 103.7 kg

DRUGS (10)
  1. ZOMETA [Suspect]
     Indication: PROSTATE CANCER
     Dosage: 4MG D2 IV
     Route: 042
     Dates: start: 20040319, end: 20040721
  2. DOCETAXEL [Suspect]
     Indication: PROSTATE CANCER
     Dosage: 70MG/M2 D2 IV
     Route: 042
     Dates: start: 20040319, end: 20040721
  3. ESTRAMUSINE [Concomitant]
     Indication: PROSTATE CANCER
     Dosage: 280 MG TID D1-3
     Dates: start: 20040318, end: 20040721
  4. PRINIVIL [Concomitant]
  5. MULTIVITAMIN [Concomitant]
  6. ADVIL [Concomitant]
  7. ALLEGRA [Concomitant]
  8. LUPRON [Concomitant]
  9. COMPAZINE [Concomitant]
  10. DECADRON [Concomitant]

REACTIONS (1)
  - PULMONARY EMBOLISM [None]
